APPROVED DRUG PRODUCT: LEFLUNOMIDE
Active Ingredient: LEFLUNOMIDE
Strength: 20MG
Dosage Form/Route: TABLET;ORAL
Application: A212453 | Product #002 | TE Code: AB
Applicant: ABHAI LLC
Approved: Jun 3, 2019 | RLD: No | RS: No | Type: RX